FAERS Safety Report 18603455 (Version 1)
Quarter: 2020Q4

REPORT INFORMATION
  Report Type: Spontaneous
  Country: CN (occurrence: CN)
  Receive Date: 20201210
  Receipt Date: 20201210
  Transmission Date: 20210114
  Serious: No
  Sender: FDA-Public Use
  Company Number: CN-LUPIN PHARMACEUTICALS INC.-2020-06842

PATIENT
  Age: 5 Year
  Sex: Female

DRUGS (3)
  1. LEVETIRACETAM. [Suspect]
     Active Substance: LEVETIRACETAM
     Indication: FEBRILE CONVULSION
     Dosage: 33 MILLIGRAM/KILOGRAM QD
     Route: 065
  2. LEVETIRACETAM. [Suspect]
     Active Substance: LEVETIRACETAM
     Dosage: 50 MILLIGRAM/KILOGRAM, QD
     Route: 065
  3. LEVETIRACETAM. [Suspect]
     Active Substance: LEVETIRACETAM
     Dosage: 18.75 MILLIGRAM/KILOGRAM, QD
     Route: 065

REACTIONS (3)
  - Agitation [Unknown]
  - Off label use [Unknown]
  - Poor quality sleep [Unknown]
